FAERS Safety Report 8484619-7 (Version None)
Quarter: 2012Q3

REPORT INFORMATION
  Report Type: 
  Country: None (occurrence: None)
  Receive Date: 20120703
  Receipt Date: 20120518
  Transmission Date: 20120928
  Serious: No
  Sender: FDA-Public Use
  Company Number: US-TEVA-339430USA

PATIENT
  Sex: Female
  Weight: 60.836 kg

DRUGS (4)
  1. LEVOTHYROXINE SODIUM [Concomitant]
     Indication: HYPOTHYROIDISM
     Route: 048
  2. NUVIGIL [Suspect]
     Indication: CATAPLEXY
     Dosage: 150 MILLIGRAM;
     Route: 048
     Dates: start: 20120513, end: 20120518
  3. NUVIGIL [Suspect]
     Indication: NARCOLEPSY
     Route: 048
     Dates: start: 20120416, end: 20120512
  4. SODIUM OXYBATE [Concomitant]
     Indication: SLEEP DISORDER
     Route: 048
     Dates: start: 20120515

REACTIONS (3)
  - BLISTER [None]
  - HERPES ZOSTER [None]
  - RASH [None]
